FAERS Safety Report 14913554 (Version 3)
Quarter: 2018Q3

REPORT INFORMATION
  Report Type: Spontaneous
  Country: JP (occurrence: JP)
  Receive Date: 20180518
  Receipt Date: 20180815
  Transmission Date: 20181010
  Serious: Yes (Death, Life-Threatening, Hospitalization, Other)
  Sender: FDA-Public Use
  Company Number: JP-009507513-1805JPN001016J

PATIENT
  Age: 68 Year
  Sex: Male
  Weight: 63 kg

DRUGS (6)
  1. TEPRENONE [Concomitant]
     Active Substance: TEPRENONE
     Indication: POSTOPERATIVE ANALGESIA
     Dosage: 50 MG, TID
     Route: 048
     Dates: start: 20180327, end: 20180508
  2. DERMOVATE [Concomitant]
     Active Substance: CLOBETASOL
     Indication: DERMATITIS CONTACT
     Dosage: UNK UNK, BID
     Route: 051
     Dates: start: 20180414, end: 20180508
  3. KEYTRUDA [Suspect]
     Active Substance: PEMBROLIZUMAB
     Indication: SQUAMOUS CELL CARCINOMA OF LUNG
     Dosage: 200 MG, Q3W
     Route: 041
     Dates: start: 20180425, end: 20180425
  4. LYRICA [Concomitant]
     Active Substance: PREGABALIN
     Indication: POSTOPERATIVE ANALGESIA
     Dosage: 25 MG, BID
     Route: 048
     Dates: start: 20180414, end: 20180502
  5. LOXOPROFEN [Concomitant]
     Active Substance: LOXOPROFEN
     Indication: POSTOPERATIVE ANALGESIA
     Dosage: 60 MG, TID
     Route: 048
     Dates: start: 20180327, end: 20180508
  6. ALLELOCK [Concomitant]
     Active Substance: OLOPATADINE HYDROCHLORIDE
     Indication: DERMATITIS CONTACT
     Dosage: 5 MG, BID
     Route: 048
     Dates: start: 20180323, end: 20180430

REACTIONS (4)
  - Myocarditis [Fatal]
  - Decreased appetite [Unknown]
  - Rhabdomyolysis [Not Recovered/Not Resolved]
  - Cardiogenic shock [Unknown]

NARRATIVE: CASE EVENT DATE: 20180507
